FAERS Safety Report 12431590 (Version 1)
Quarter: 2016Q2

REPORT INFORMATION
  Report Type: Spontaneous
  Country: FR (occurrence: FR)
  Receive Date: 20160603
  Receipt Date: 20160603
  Transmission Date: 20160815
  Serious: Yes (Other)
  Sender: FDA-Public Use
  Company Number: FR-BRISTOL-MYERS SQUIBB COMPANY-BMS-2016-042671

PATIENT
  Age: 68 Year
  Sex: Male

DRUGS (1)
  1. ELIQUIS [Suspect]
     Active Substance: APIXABAN
     Indication: CEREBROVASCULAR ACCIDENT PROPHYLAXIS
     Dosage: 5 MG, BID
     Route: 065
     Dates: start: 201510

REACTIONS (5)
  - Haemoglobin decreased [Unknown]
  - Polyp [Recovered/Resolved]
  - Packed red blood cell transfusion [Unknown]
  - Rectal haemorrhage [Recovered/Resolved]
  - Polypectomy [Recovered/Resolved]

NARRATIVE: CASE EVENT DATE: 201604
